FAERS Safety Report 4789447-1 (Version None)
Quarter: 2005Q4

REPORT INFORMATION
  Report Type: 
  Country: None (occurrence: None)
  Receive Date: 20051004
  Receipt Date: 20051004
  Transmission Date: 20060501
  Serious: No
  Sender: FDA-Public Use
  Company Number: None

PATIENT
  Sex: Male

DRUGS (9)
  1. INFLIXIMAB [Suspect]
     Indication: COLITIS ULCERATIVE
     Dosage: 250 MG IV X 1
     Route: 042
  2. CALCARBONATE [Concomitant]
  3. LANSOPRAZOLE [Concomitant]
  4. METHYLPREDNISOLONE [Concomitant]
  5. FERROUS GLUCONATE [Concomitant]
  6. CLOTRIMAZOLE [Concomitant]
  7. DIPHENHYDRAMINE HCL [Concomitant]
  8. WITCH HAZEL [Concomitant]
  9. MORPHINE [Concomitant]

REACTIONS (6)
  - ABDOMINAL PAIN [None]
  - COLITIS ULCERATIVE [None]
  - CONDITION AGGRAVATED [None]
  - DIARRHOEA HAEMORRHAGIC [None]
  - OXYGEN SATURATION DECREASED [None]
  - VOMITING [None]
